FAERS Safety Report 5034834-X (Version None)
Quarter: 2006Q2

REPORT INFORMATION
  Report Type: 
  Country: None (occurrence: None)
  Receive Date: 20060519
  Receipt Date: 20060306
  Transmission Date: 20061013
  Serious: No
  Sender: FDA-Public Use
  Company Number: TPA2006A00394

PATIENT
  Age: 78 Year
  Sex: Female
  Weight: 68.0396 kg

DRUGS (6)
  1. ROZEREM [Suspect]
     Indication: SLEEP DISORDER
     Dosage: 8 MG, HS, PER ORAL
     Route: 048
     Dates: start: 20060222
  2. REQUIP (ROPINIROLE HYDROCHLORIDE) (25 MILLIGRAM) [Concomitant]
  3. LUNESTA (ESZOPICLONE) (200 MILLIGRAM) [Concomitant]
  4. ALTACE (RAMIPRIL) (10 MILLIGRAM) [Concomitant]
  5. LIPITOR [Concomitant]
  6. ADVIL [Concomitant]

REACTIONS (2)
  - DRUG INEFFECTIVE [None]
  - INITIAL INSOMNIA [None]
